FAERS Safety Report 7334703-6 (Version None)
Quarter: 2011Q1

REPORT INFORMATION
  Report Type: 
  Country: None (occurrence: None)
  Receive Date: 20110307
  Receipt Date: 20110224
  Transmission Date: 20110831
  Serious: Yes (Hospitalization)
  Sender: FDA-Public Use
  Company Number: FR-JNJFOC-20101103879

PATIENT
  Age: 62 Year
  Sex: Female

DRUGS (7)
  1. REMICADE [Suspect]
     Dosage: 1-3 INFUSIONS
     Route: 042
  2. BISOPROLOL FUMARATE [Concomitant]
     Indication: HYPERTENSION
     Route: 048
  3. REMICADE [Suspect]
     Dosage: 4TH INFUSION
     Route: 042
  4. LEXOMIL [Concomitant]
     Indication: ANXIETY
     Route: 048
  5. REMICADE [Suspect]
     Dosage: 1-3 INFUSIONS
     Route: 042
  6. PROZAC [Concomitant]
     Indication: ANXIETY
     Route: 048
  7. REMICADE [Suspect]
     Indication: CROHN'S DISEASE
     Dosage: 1-3 INFUSIONS
     Route: 042

REACTIONS (2)
  - DERMATITIS BULLOUS [None]
  - HYPERSENSITIVITY [None]
